FAERS Safety Report 19572264 (Version 4)
Quarter: 2021Q3

REPORT INFORMATION
  Report Type: Report from Study
  Country: None (occurrence: SG)
  Receive Date: 20210716
  Receipt Date: 20210930
  Transmission Date: 20211014
  Serious: Yes (Hospitalization)
  Sender: FDA-Public Use
  Company Number: SG-ABBVIE-21P-141-3979449-00

PATIENT
  Age: 45 Year
  Sex: Male
  Weight: 113 kg

DRUGS (16)
  1. GLIPIZIDE. [Concomitant]
     Active Substance: GLIPIZIDE
     Indication: DIABETES MELLITUS
     Route: 048
     Dates: start: 20160507
  2. NIFEDIPINE. [Concomitant]
     Active Substance: NIFEDIPINE
     Indication: HYPERTENSION
     Route: 048
     Dates: start: 20150929
  3. MOMETASONE [Concomitant]
     Active Substance: MOMETASONE
     Indication: DERMATITIS ATOPIC
     Dosage: 1 APPLICATION
     Route: 061
     Dates: start: 20191223
  4. PODOPHYLLIN PAINT [Concomitant]
     Indication: DERMATITIS ATOPIC
     Dosage: 1 APPLICATION
     Route: 061
     Dates: start: 20200831
  5. UPADACITINIB [Suspect]
     Active Substance: UPADACITINIB
     Indication: DERMATITIS ATOPIC
     Route: 048
     Dates: start: 20190903, end: 20210701
  6. DAPAGLIFLOZIN. [Concomitant]
     Active Substance: DAPAGLIFLOZIN
     Indication: DIABETES MELLITUS
     Route: 048
     Dates: start: 20170816
  7. EGO QV [Concomitant]
     Indication: DRY SKIN PROPHYLAXIS
     Dosage: I APPLICATION
     Route: 061
     Dates: start: 20190805
  8. METFORMIN [Concomitant]
     Active Substance: METFORMIN HYDROCHLORIDE
     Indication: DIABETES MELLITUS
     Route: 048
     Dates: start: 20150929
  9. BACTROBAN [Concomitant]
     Active Substance: MUPIROCIN\MUPIROCIN CALCIUM
     Indication: DERMATITIS ATOPIC
     Dosage: 1 APPLICATION
     Route: 061
     Dates: start: 20210517
  10. VALSARTAN. [Concomitant]
     Active Substance: VALSARTAN
     Indication: HYPERTENSION
     Route: 048
     Dates: start: 20190619
  11. PHYSIOGEL CREAM [Concomitant]
     Indication: DRY SKIN PROPHYLAXIS
     Dosage: 1 APPLICATION
     Route: 061
     Dates: start: 20190805
  12. CLOBETASOL [Concomitant]
     Active Substance: CLOBETASOL
     Indication: DERMATITIS ATOPIC
     Dosage: 1 APPLICATION/LOTION
     Route: 061
     Dates: start: 20210202
  13. HYDROCHLOROTHIAZIDE. [Concomitant]
     Active Substance: HYDROCHLOROTHIAZIDE
     Indication: HYPERTENSION
     Route: 048
     Dates: start: 20151001
  14. UPADACITINIB [Suspect]
     Active Substance: UPADACITINIB
     Route: 048
     Dates: start: 20210714
  15. ATORVASTATIN [Concomitant]
     Active Substance: ATORVASTATIN
     Indication: BLOOD CHOLESTEROL
     Route: 048
     Dates: start: 20151210
  16. PROTOPIC [Concomitant]
     Active Substance: TACROLIMUS
     Indication: DERMATITIS ATOPIC
     Dosage: 1 APPLICATION
     Route: 061
     Dates: start: 20200120

REACTIONS (1)
  - Herpes zoster cutaneous disseminated [Not Recovered/Not Resolved]

NARRATIVE: CASE EVENT DATE: 20210630
